FAERS Safety Report 20785247 (Version 1)
Quarter: 2022Q2

REPORT INFORMATION
  Report Type: Spontaneous
  Country: US (occurrence: None)
  Receive Date: 20220504
  Receipt Date: 20220504
  Transmission Date: 20220721
  Serious: No
  Sender: FDA-Public Use
  Company Number: None

PATIENT
  Age: 32 Year
  Sex: Male

DRUGS (1)
  1. TOBRAMYCIN [Suspect]
     Active Substance: TOBRAMYCIN
     Dosage: FREQUENCY : TWICE A DAY;?
     Route: 045
     Dates: start: 20220428

REACTIONS (1)
  - Pseudomonas infection [None]

NARRATIVE: CASE EVENT DATE: 20220504
